FAERS Safety Report 5976262-6 (Version None)
Quarter: 2008Q4

REPORT INFORMATION
  Report Type: 
  Country: None (occurrence: None)
  Receive Date: 20081202
  Receipt Date: 20081124
  Transmission Date: 20090506
  Serious: Yes (Death)
  Sender: FDA-Public Use
  Company Number: US-GILEAD-2008-0018529

PATIENT
  Sex: Male

DRUGS (18)
  1. LETAIRIS [Suspect]
     Indication: PULMONARY HYPERTENSION
     Dates: start: 20080508, end: 20080911
  2. LOPRESSOR [Concomitant]
  3. AMLODIPINE [Concomitant]
  4. ZETIA [Concomitant]
  5. PRAVASTATIN [Concomitant]
  6. WARFARIN SODIUM [Concomitant]
  7. PLAVIX [Concomitant]
  8. STARLIX [Concomitant]
  9. LANTUS [Concomitant]
  10. FORTAMET [Concomitant]
  11. OXYCODONE HCL [Concomitant]
  12. LASIX [Concomitant]
  13. PROCRIT [Concomitant]
  14. ACIPHEX [Concomitant]
  15. PREVACID [Concomitant]
  16. FLOMAX [Concomitant]
  17. ZINC SULFATE [Concomitant]
  18. POTASSIUM CHLORIDE [Concomitant]

REACTIONS (1)
  - CARDIAC FAILURE CONGESTIVE [None]
